FAERS Safety Report 12530411 (Version 1)
Quarter: 2016Q3

REPORT INFORMATION
  Report Type: Spontaneous
  Country: US (occurrence: None)
  Receive Date: 20160705
  Receipt Date: 20160705
  Transmission Date: 20161109
  Serious: No
  Sender: FDA-Public Use
  Company Number: None

PATIENT
  Age: 37 Year
  Sex: Female

DRUGS (1)
  1. NORA BE [Suspect]
     Active Substance: NORETHINDRONE
     Indication: CONTRACEPTION

REACTIONS (1)
  - Suppressed lactation [None]
